FAERS Safety Report 4494971-5 (Version None)
Quarter: 2004Q4

REPORT INFORMATION
  Report Type: 
  Country: None (occurrence: None)
  Receive Date: 20041105
  Receipt Date: 20041105
  Transmission Date: 20050328
  Serious: Yes (Other)
  Sender: FDA-Public Use
  Company Number: None

PATIENT
  Sex: Female
  Weight: 113.3993 kg

DRUGS (1)
  1. SEASONALE [Suspect]
     Indication: CONTRACEPTION
     Dosage: ONE PILL    DAILY    ORAL
     Route: 048
     Dates: start: 20041101, end: 20041104

REACTIONS (2)
  - DEPRESSION [None]
  - PARANOIA [None]
